FAERS Safety Report 6980669-8 (Version None)
Quarter: 2010Q3

REPORT INFORMATION
  Report Type: 
  Country: None (occurrence: None)
  Receive Date: 20100914
  Receipt Date: 20100902
  Transmission Date: 20110219
  Serious: Yes (Hospitalization, Other)
  Sender: FDA-Public Use
  Company Number: US-PFIZER INC-2010064795

PATIENT
  Sex: Male

DRUGS (2)
  1. CHANTIX [Suspect]
     Indication: SMOKING CESSATION THERAPY
     Dosage: STARTER PAK AND MAINTENANCE PAK
     Dates: start: 20070701, end: 20070701
  2. CHANTIX [Suspect]
     Dosage: STARTER PAK AND MAINTENANCE PAK
     Dates: start: 20080301, end: 20080401

REACTIONS (9)
  - ABNORMAL DREAMS [None]
  - ADJUSTMENT DISORDER [None]
  - AMNESIA [None]
  - DEPRESSION [None]
  - FATIGUE [None]
  - HEADACHE [None]
  - IRRITABILITY [None]
  - SLEEP DISORDER [None]
  - SUICIDAL IDEATION [None]
